FAERS Safety Report 7007109-7 (Version None)
Quarter: 2010Q3

REPORT INFORMATION
  Report Type: 
  Country: None (occurrence: None)
  Receive Date: 20100920
  Receipt Date: 20100903
  Transmission Date: 20110219
  Serious: Yes (Disabling, Other)
  Sender: FDA-Public Use
  Company Number: ACO_02108_2010

PATIENT
  Sex: Female
  Weight: 65.7716 kg

DRUGS (1)
  1. AMPYRA [Suspect]
     Indication: GAIT DISTURBANCE
     Dosage: 10 MG BID ORAL
     Route: 048
     Dates: start: 20100630, end: 20100721

REACTIONS (3)
  - FOOT DEFORMITY [None]
  - MULTIPLE SCLEROSIS RELAPSE [None]
  - SPINAL CORD INJURY LUMBAR [None]
